FAERS Safety Report 13280889 (Version 1)
Quarter: 2017Q1

REPORT INFORMATION
  Report Type: Spontaneous
  Country: US (occurrence: US)
  Receive Date: 20170301
  Receipt Date: 20170301
  Transmission Date: 20170428
  Serious: No
  Sender: FDA-Public Use
  Company Number: US-INSYS THERAPEUTICS, INC-INS201606-000260

PATIENT
  Sex: Female

DRUGS (2)
  1. SUBSYS [Suspect]
     Active Substance: FENTANYL
     Indication: OSTEONECROSIS
     Route: 060
     Dates: start: 20150710
  2. SUBSYS [Suspect]
     Active Substance: FENTANYL

REACTIONS (1)
  - Dyspnoea [Recovering/Resolving]
